FAERS Safety Report 6595572-5 (Version None)
Quarter: 2010Q1

REPORT INFORMATION
  Report Type: 
  Country: None (occurrence: None)
  Receive Date: 20100223
  Receipt Date: 20100105
  Transmission Date: 20100710
  Serious: Yes (Death)
  Sender: FDA-Public Use
  Company Number: US-TYCO HEALTHCARE/MALLINCKRODT-T201000308

PATIENT
  Age: 46 Year
  Sex: Male

DRUGS (3)
  1. OXYCODONE [Suspect]
     Route: 048
  2. CARISOPRODOL [Suspect]
     Route: 048
  3. BENZODIAZEPINE [Suspect]
     Route: 048

REACTIONS (2)
  - CARDIO-RESPIRATORY ARREST [None]
  - DRUG ABUSE [None]
